FAERS Safety Report 9148253 (Version 1)
Quarter: 2013Q1

REPORT INFORMATION
  Report Type: Report from Study
  Country: US (occurrence: US)
  Receive Date: 20130308
  Receipt Date: 20130308
  Transmission Date: 20140127
  Serious: No
  Sender: FDA-Public Use
  Company Number: US-009507513-1303USA003413

PATIENT
  Sex: Male

DRUGS (3)
  1. RIBAVIRIN [Suspect]
     Indication: CHRONIC HEPATITIS C
     Dosage: 1400 MG, QD
     Dates: start: 20120330
  2. PEGASYS [Suspect]
     Indication: CHRONIC HEPATITIS C
     Dosage: 180 MICROGRAM, QW, 1 IN 1 WEEK
     Route: 058
     Dates: start: 20120330
  3. BOCEPREVIR [Suspect]
     Indication: CHRONIC HEPATITIS C
     Dosage: UNK
     Dates: start: 20120323

REACTIONS (7)
  - Asthenia [Unknown]
  - Pain [Unknown]
  - Headache [Unknown]
  - Dysgeusia [Unknown]
  - Dry skin [Unknown]
  - Nasopharyngitis [Unknown]
  - Pain [Unknown]
